FAERS Safety Report 21514840 (Version 1)
Quarter: 2022Q4

REPORT INFORMATION
  Report Type: Spontaneous
  Country: US (occurrence: None)
  Receive Date: 20221027
  Receipt Date: 20221027
  Transmission Date: 20230113
  Serious: No
  Sender: FDA-Public Use
  Company Number: None

PATIENT
  Age: 66 Year
  Sex: Male
  Weight: 66.22 kg

DRUGS (9)
  1. CYCLOSPORINE [Suspect]
     Active Substance: CYCLOSPORINE
     Indication: Neoplasm
     Dosage: FREQUENCY : TWICE A DAY;?
     Route: 048
  2. ARANESP [Concomitant]
     Active Substance: DARBEPOETIN ALFA
  3. STOOK SOFTNER [Concomitant]
  4. DEFERASIROX [Concomitant]
  5. KRILL OIL [Concomitant]
  6. VITAL REDS [Concomitant]
  7. VITAMIN B COMPLEX [Concomitant]
  8. VITAMIN D3 [Concomitant]
  9. VITAMIN K [Concomitant]

REACTIONS (1)
  - Drug ineffective [None]
